FAERS Safety Report 13191300 (Version 1)
Quarter: 2017Q1

REPORT INFORMATION
  Report Type: Spontaneous
  Country: US (occurrence: US)
  Receive Date: 20170206
  Receipt Date: 20170206
  Transmission Date: 20170428
  Serious: No
  Sender: FDA-Public Use
  Company Number: None

PATIENT
  Age: 63 Year
  Sex: Female
  Weight: 57.6 kg

DRUGS (5)
  1. YUVAFEM [Suspect]
     Active Substance: ESTRADIOL HEMIHYDRATE
     Indication: MENOPAUSAL SYMPTOMS
     Dosage: ?          OTHER STRENGTH:MCG;QUANTITY:1 TABLET(S);OTHER FREQUENCY:THREE TIMES A WEEK;?
     Route: 067
     Dates: start: 20170201, end: 20170206
  2. VITAMIN D [Concomitant]
     Active Substance: CHOLECALCIFEROL
  3. YUVAFEM [Suspect]
     Active Substance: ESTRADIOL HEMIHYDRATE
     Indication: VULVOVAGINAL PAIN
     Dosage: ?          OTHER STRENGTH:MCG;QUANTITY:1 TABLET(S);OTHER FREQUENCY:THREE TIMES A WEEK;?
     Route: 067
     Dates: start: 20170201, end: 20170206
  4. YUVAFEM [Suspect]
     Active Substance: ESTRADIOL HEMIHYDRATE
     Indication: VULVOVAGINAL DRYNESS
     Dosage: ?          OTHER STRENGTH:MCG;QUANTITY:1 TABLET(S);OTHER FREQUENCY:THREE TIMES A WEEK;?
     Route: 067
     Dates: start: 20170201, end: 20170206
  5. CALCIUM [Concomitant]
     Active Substance: CALCIUM

REACTIONS (3)
  - Vulvovaginal burning sensation [None]
  - Vulvovaginal discomfort [None]
  - Vulvovaginal erythema [None]

NARRATIVE: CASE EVENT DATE: 20170201
